FAERS Safety Report 18625592 (Version 1)
Quarter: 2020Q4

REPORT INFORMATION
  Report Type: Spontaneous
  Country: BR (occurrence: BR)
  Receive Date: 20201217
  Receipt Date: 20201217
  Transmission Date: 20210114
  Serious: Yes (Other)
  Sender: FDA-Public Use
  Company Number: BR-EMD SERONO-9206133

PATIENT
  Age: 88 Year
  Sex: Male
  Weight: 59 kg

DRUGS (11)
  1. METFORMIN [Suspect]
     Active Substance: METFORMIN HYDROCHLORIDE
     Indication: DIABETES MELLITUS
     Route: 048
     Dates: start: 2010
  2. SIMVASTATIN. [Concomitant]
     Active Substance: SIMVASTATIN
     Indication: CORONARY ARTERY BYPASS
     Dates: start: 2006
  3. JARDIANCE [Concomitant]
     Active Substance: EMPAGLIFLOZIN
     Indication: DIABETES MELLITUS
     Dates: start: 2010
  4. AAS [Concomitant]
     Active Substance: ASPIRIN
     Indication: CORONARY ARTERY BYPASS
  5. VASOGARD [Concomitant]
     Active Substance: CILOSTAZOL
     Indication: POOR PERIPHERAL CIRCULATION
     Dates: start: 2014
  6. TIAMIN [Concomitant]
     Indication: SPINAL STENOSIS
     Dates: start: 201711
  7. MONOCORDIL [Concomitant]
     Active Substance: ISOSORBIDE MONONITRATE
     Indication: CORONARY ARTERY BYPASS
     Dates: start: 2006
  8. DOXAZOSINA                         /00639301/ [Concomitant]
     Active Substance: DOXAZOSIN MESYLATE
     Indication: PENILE DISCOMFORT
     Dates: start: 2020
  9. CANDICORT                          /01503901/ [Concomitant]
     Indication: PENILE DISCOMFORT
     Dates: start: 202005
  10. ABLOK [Concomitant]
     Active Substance: ATENOLOL
     Indication: CORONARY ARTERY BYPASS
  11. ARADOIS [Concomitant]
     Active Substance: LOSARTAN POTASSIUM
     Indication: CORONARY ARTERY BYPASS
     Dates: start: 2006

REACTIONS (2)
  - Spinal stenosis [Not Recovered/Not Resolved]
  - Penile discomfort [Not Recovered/Not Resolved]

NARRATIVE: CASE EVENT DATE: 201711
